FAERS Safety Report 9030601 (Version 3)
Quarter: 2013Q2

REPORT INFORMATION
  Report Type: Report from Study
  Country: JP (occurrence: JP)
  Receive Date: 20130123
  Receipt Date: 20130503
  Transmission Date: 20140414
  Serious: No
  Sender: FDA-Public Use
  Company Number: JP-SANOFI-AVENTIS-2013SA004923

PATIENT
  Age: 63 Year
  Sex: Male
  Weight: 75 kg

DRUGS (5)
  1. INSULIN GLARGINE [Suspect]
     Indication: TYPE 2 DIABETES MELLITUS
     Dosage: AFTER BREAKFAST DOSE:6 UNIT(S)
     Route: 058
     Dates: start: 20120426, end: 20120530
  2. SOLOSTAR [Suspect]
     Indication: DEVICE THERAPY
     Route: 058
     Dates: start: 20120426, end: 20120605
  3. OLMETEC [Concomitant]
     Route: 048
     Dates: start: 20100119, end: 20120530
  4. GLIMICRON [Concomitant]
     Indication: TYPE 2 DIABETES MELLITUS
     Route: 048
     Dates: start: 20070323, end: 20120530
  5. ORAL ANTIDIABETICS [Concomitant]
     Indication: TYPE 2 DIABETES MELLITUS
     Route: 048
     Dates: start: 20120215, end: 20120530

REACTIONS (1)
  - No adverse event [Unknown]
